FAERS Safety Report 6795748-8 (Version None)
Quarter: 2010Q2

REPORT INFORMATION
  Report Type: 
  Country: None (occurrence: None)
  Receive Date: 20100625
  Receipt Date: 20100614
  Transmission Date: 20101027
  Serious: Yes (Hospitalization)
  Sender: FDA-Public Use
  Company Number: IT-JNJFOC-20080105420

PATIENT
  Age: 69 Year
  Sex: Male
  Weight: 82 kg

DRUGS (16)
  1. INFLIXIMAB [Suspect]
     Indication: RHEUMATOID ARTHRITIS
     Route: 042
  2. METHOTREXATE [Suspect]
     Indication: RHEUMATOID ARTHRITIS
     Route: 030
  3. PREDNISONE [Suspect]
     Indication: RHEUMATOID ARTHRITIS
  4. ISONIAZID [Concomitant]
     Indication: ANTIBIOTIC PROPHYLAXIS
  5. BISOPROLOL [Concomitant]
     Indication: CORONARY ARTERY DISEASE
  6. ASPIRIN [Concomitant]
     Indication: CORONARY ARTERY DISEASE
     Dosage: }5 YEARS
  7. ZOFENOPRIL [Concomitant]
     Indication: HYPERTENSION
  8. AMYTRIPTILLINE [Concomitant]
     Indication: DEPRESSION
  9. LEDERFOLIN [Concomitant]
     Dosage: 8 MONTHS
  10. NICOZID [Concomitant]
     Dosage: 6 MONTHS
  11. BENADON [Concomitant]
     Dosage: 6 MONTHS
  12. CARDIOCOR [Concomitant]
     Dosage: 6 MONTHS
  13. PRAVASELECT [Concomitant]
     Dosage: }5 YEARS
  14. SERPAX [Concomitant]
     Dosage: }10 YEARS
  15. AMITRIPTYLINE HCL [Concomitant]
     Dosage: }10 YEARS
  16. BIFRIL [Concomitant]
     Dosage: 6 MONTHS

REACTIONS (3)
  - ASTHENIA [None]
  - CONFUSIONAL STATE [None]
  - PNEUMONIA LEGIONELLA [None]
